FAERS Safety Report 25205995 (Version 1)
Quarter: 2025Q2

REPORT INFORMATION
  Report Type: Spontaneous
  Country: BR (occurrence: BR)
  Receive Date: 20250417
  Receipt Date: 20250417
  Transmission Date: 20250716
  Serious: Yes (Other)
  Sender: Atnahs Healthcare
  Company Number: BR-ATNAHS-ATNAHS20250302363

PATIENT
  Sex: Female

DRUGS (2)
  1. CLOBAZAM [Suspect]
     Active Substance: CLOBAZAM
     Indication: Product used for unknown indication
  2. DIAZEPAM [Suspect]
     Active Substance: DIAZEPAM
     Indication: Insomnia

REACTIONS (5)
  - Seizure [Unknown]
  - Syncope [Unknown]
  - Insomnia [Unknown]
  - Off label use [Unknown]
  - Product availability issue [Unknown]
